FAERS Safety Report 14021097 (Version 1)
Quarter: 2017Q3

REPORT INFORMATION
  Report Type: Spontaneous
  Country: US (occurrence: US)
  Receive Date: 20170928
  Receipt Date: 20170928
  Transmission Date: 20171128
  Serious: No
  Sender: FDA-Public Use
  Company Number: US-ROCHE-GNE319373

PATIENT
  Age: 69 Year
  Sex: Female
  Weight: 68.27 kg

DRUGS (1)
  1. LUCENTIS [Suspect]
     Active Substance: RANIBIZUMAB
     Indication: MACULAR DEGENERATION
     Dosage: UNK
     Route: 031

REACTIONS (5)
  - Headache [None]
  - Pneumonia streptococcal [Unknown]
  - Insomnia [None]
  - Oxygen saturation decreased [None]
  - Arthralgia [None]

NARRATIVE: CASE EVENT DATE: 201101
